FAERS Safety Report 19944245 (Version 1)
Quarter: 2021Q4

REPORT INFORMATION
  Report Type: Spontaneous
  Country: US (occurrence: US)
  Receive Date: 20211011
  Receipt Date: 20211011
  Transmission Date: 20220303
  Serious: No
  Sender: FDA-Public Use
  Company Number: US-JUBILANT CADISTA PHARMACEUTICALS-2021JUB00221

PATIENT
  Age: 76 Year
  Sex: Female
  Weight: 56.69 kg

DRUGS (2)
  1. PREDNISONE [Suspect]
     Active Substance: PREDNISONE
     Indication: Inflammation
     Dosage: 10 MG, ONCE
     Route: 048
     Dates: start: 202107, end: 202107
  2. PREDNISONE [Suspect]
     Active Substance: PREDNISONE
     Indication: Pain
     Dosage: 5 MG, ONCE
     Route: 048
     Dates: start: 202107, end: 202107

REACTIONS (7)
  - Nervousness [Recovered/Resolved]
  - Abdominal pain upper [Recovered/Resolved]
  - Eye pain [Recovered/Resolved]
  - Off label use [Recovered/Resolved]
  - Agitation [Unknown]
  - Abdominal discomfort [Unknown]
  - Insomnia [Unknown]

NARRATIVE: CASE EVENT DATE: 20210701
